FAERS Safety Report 10891390 (Version 4)
Quarter: 2015Q2

REPORT INFORMATION
  Report Type: Spontaneous
  Country: GB (occurrence: GB)
  Receive Date: 20150306
  Receipt Date: 20150403
  Transmission Date: 20150821
  Serious: Yes (Death, Other)
  Sender: FDA-Public Use
  Company Number: GB-TEVA-544674ACC

PATIENT
  Age: 71 Year
  Sex: Female
  Weight: 64.3 kg

DRUGS (6)
  1. ABACAVIR [Suspect]
     Active Substance: ABACAVIR
     Indication: CHEMOTHERAPY
  2. ONDANSETRON [Concomitant]
     Active Substance: ONDANSETRON
     Indication: PREMEDICATION
     Dosage: OVER 30 MINUTES IN NORMAL SALINE; INFUSION
     Dates: start: 20150115, end: 20150115
  3. ATENOLOL. [Concomitant]
     Active Substance: ATENOLOL
  4. CARBOPLATIN. [Suspect]
     Active Substance: CARBOPLATIN
     Indication: CHEMOTHERAPY
     Dosage: 400 MG IN 500 ML OF 5% GLUCOSE ATTACHED TO CENTRAL LINE; INFUSION
     Route: 042
     Dates: start: 20150115, end: 20150115
  5. VINORELBINE [Suspect]
     Active Substance: VINORELBINE\VINORELBINE TARTRATE
     Indication: CHEMOTHERAPY
     Dosage: OVER 10 MINUTES, INFUSION
     Route: 042
     Dates: start: 20150115, end: 20150115
  6. DEXAMETHASONE. [Concomitant]
     Active Substance: DEXAMETHASONE
     Indication: PREMEDICATION
     Dosage: OVER 30 MINUTES IN NORMAL SALINE; INFUSION
     Dates: start: 20150115, end: 20150115

REACTIONS (10)
  - Back pain [Not Recovered/Not Resolved]
  - Hypersensitivity [Not Recovered/Not Resolved]
  - Blood pressure decreased [Not Recovered/Not Resolved]
  - Dyspnoea [Not Recovered/Not Resolved]
  - Cold sweat [Not Recovered/Not Resolved]
  - Flushing [Not Recovered/Not Resolved]
  - Depressed level of consciousness [Not Recovered/Not Resolved]
  - Heart rate decreased [Not Recovered/Not Resolved]
  - Cardiopulmonary failure [Fatal]
  - Malaise [Not Recovered/Not Resolved]

NARRATIVE: CASE EVENT DATE: 20150115
